FAERS Safety Report 6974725-8 (Version None)
Quarter: 2010Q3

REPORT INFORMATION
  Report Type: 
  Country: None (occurrence: None)
  Receive Date: 20100824
  Receipt Date: 20100719
  Transmission Date: 20110219
  Serious: No
  Sender: FDA-Public Use
  Company Number: 312155

PATIENT
  Age: 45 Year
  Sex: Female

DRUGS (1)
  1. VICTOZA [Suspect]
     Indication: GESTATIONAL DIABETES
     Dosage: 0.6 GM QD SUBCUTANEOUS; 1.8 MG QD SUBCUTANEOUS
     Route: 058

REACTIONS (2)
  - HEADACHE [None]
  - VISION BLURRED [None]
